FAERS Safety Report 5948290-8 (Version None)
Quarter: 2008Q4

REPORT INFORMATION
  Report Type: 
  Country: None (occurrence: None)
  Receive Date: 20081110
  Receipt Date: 20081110
  Transmission Date: 20090506
  Serious: Yes (Other)
  Sender: FDA-Public Use
  Company Number: None

PATIENT
  Age: 40 Year
  Sex: Male
  Weight: 95.2554 kg

DRUGS (1)
  1. ENBREL [Suspect]
     Indication: PSORIASIS
     Dosage: ONCE A WEEK IM
     Route: 030
     Dates: start: 20080101, end: 20081110

REACTIONS (3)
  - DIPLEGIA [None]
  - MUSCLE RIGIDITY [None]
  - PARAESTHESIA [None]
